FAERS Safety Report 4651573-5 (Version None)
Quarter: 2005Q2

REPORT INFORMATION
  Report Type: 
  Country: None (occurrence: None)
  Receive Date: 20050502
  Receipt Date: 20050421
  Transmission Date: 20051028
  Serious: Yes (Hospitalization, Other)
  Sender: FDA-Public Use
  Company Number: 2005061784

PATIENT
  Age: 70 Year
  Sex: Male
  Weight: 96.1626 kg

DRUGS (5)
  1. TIKOSYN [Suspect]
     Indication: ATRIAL FLUTTER
     Dosage: 1 MG (0.5 MG, BID INTERVAL:  EVERY DAY) ORAL
     Route: 048
     Dates: start: 20041201
  2. ESOMEPRAZOLE (ESOMEPRAZOLE) [Suspect]
     Indication: REFLUX GASTRITIS
     Dosage: ORAL
     Route: 048
     Dates: start: 20040101, end: 20050401
  3. METRONIDAZOLE [Suspect]
     Indication: INFECTION
     Dosage: 750 (250 MG, TID EVERY DAY), ORAL
     Route: 048
     Dates: start: 20050111, end: 20050411
  4. WARFARIN SODIUM [Concomitant]
  5. TELMISARTAN (TELMISARTAN) [Concomitant]

REACTIONS (8)
  - BLOOD PRESSURE INCREASED [None]
  - DIARRHOEA [None]
  - DRUG INTERACTION [None]
  - EXTRASYSTOLES [None]
  - HEART RATE IRREGULAR [None]
  - INFECTION [None]
  - IRRITABLE BOWEL SYNDROME [None]
  - STRESS [None]
